FAERS Safety Report 9322381 (Version 1)
Quarter: 2013Q2

REPORT INFORMATION
  Report Type: Spontaneous
  Country: None (occurrence: US)
  Receive Date: 20130531
  Receipt Date: 20130531
  Transmission Date: 20140414
  Serious: No
  Sender: FDA-Public Use
  Company Number: US-TARO-2012P1016989

PATIENT
  Age: 54 Year
  Sex: Female
  Weight: 55.79 kg

DRUGS (5)
  1. CLOTRIMAZOLE [Suspect]
     Indication: FUNGAL INFECTION
     Dates: start: 20120330, end: 20120401
  2. VITAMIN D [Concomitant]
  3. EVENING PRIMROSE OIL [Concomitant]
  4. PROBIOTICS [Concomitant]
  5. Y11(YEAST KILLING) [Concomitant]

REACTIONS (2)
  - Drug ineffective [Not Recovered/Not Resolved]
  - Fungal infection [Unknown]
